FAERS Safety Report 14404147 (Version 2)
Quarter: 2019Q2

REPORT INFORMATION
  Report Type: Spontaneous
  Country: US (occurrence: US)
  Receive Date: 20180117
  Receipt Date: 20190606
  Transmission Date: 20190711
  Serious: Yes (Other)
  Sender: FDA-Public Use
  Company Number: US-SHIRE-US201800417

PATIENT
  Age: 55 Year
  Sex: Female

DRUGS (7)
  1. NORVASC [Concomitant]
     Active Substance: AMLODIPINE BESYLATE
     Indication: HYPERTENSION
  2. AMLODIPINE                         /00972402/ [Concomitant]
     Active Substance: AMLODIPINE BESYLATE
     Indication: HYPERTENSION
  3. HYQVIA [Suspect]
     Active Substance: HUMAN IMMUNOGLOBULIN G\HYALURONIDASE RECOMBINANT HUMAN
     Indication: HYPOGAMMAGLOBULINAEMIA
     Dosage: 300 UNK, UNK
     Route: 065
     Dates: start: 201708
  4. HYQVIA [Suspect]
     Active Substance: HUMAN IMMUNOGLOBULIN G\HYALURONIDASE RECOMBINANT HUMAN
     Dosage: 300 MG/KG, 1X A MONTH
     Route: 065
     Dates: start: 201712
  5. DEXAMETHASONE                      /00016002/ [Concomitant]
     Active Substance: DEXAMETHASONE SODIUM PHOSPHATE
     Indication: PRODUCT USED FOR UNKNOWN INDICATION
  6. INDERAL [Concomitant]
     Active Substance: PROPRANOLOL HYDROCHLORIDE
     Indication: HYPERTENSION
  7. SILVER SULFADIAZINE. [Concomitant]
     Active Substance: SILVER SULFADIAZINE
     Indication: VARICOSE VEIN
     Dosage: UNK UNK, 1X A MONTH

REACTIONS (13)
  - White blood cell count increased [Unknown]
  - Fatigue [Recovering/Resolving]
  - Gait inability [None]
  - Cellulitis [Unknown]
  - Hypertension [Unknown]
  - Teething [Unknown]
  - Tachycardia [Unknown]
  - Pallor [None]
  - Staphylococcal infection [Unknown]
  - Pain [Unknown]
  - Injection site reaction [Unknown]
  - Flight of ideas [Unknown]
  - Injection site discolouration [Unknown]
